FAERS Safety Report 18714339 (Version 1)
Quarter: 2021Q1

REPORT INFORMATION
  Report Type: Spontaneous
  Country: ES (occurrence: ES)
  Receive Date: 20210108
  Receipt Date: 20210108
  Transmission Date: 20210419
  Serious: Yes (Other)
  Sender: FDA-Public Use
  Company Number: ES-SUN PHARMACEUTICAL INDUSTRIES LTD-2020RR-274557

PATIENT
  Age: 67 Year
  Sex: Female

DRUGS (3)
  1. OXALIPLATIN. [Suspect]
     Active Substance: OXALIPLATIN
     Indication: COLON CANCER
     Dosage: 174 MILLIGRAM, DAILY
     Route: 042
     Dates: start: 20200710, end: 20201112
  2. BEVACIZUMAB (2952A) [Suspect]
     Active Substance: BEVACIZUMAB
     Indication: COLON CANCER
     Dosage: 525 MILLIGRAM, DAILY
     Route: 042
     Dates: start: 20200710, end: 20201112
  3. CAPECITABINA NORMON 500 MG COMPRIMIDOS RECUBIERTOS CON PELICULA EFG... [Suspect]
     Active Substance: CAPECITABINE
     Indication: COLON CANCER
     Dosage: 1300 MILLIGRAM, BID, HAS RECEIVED 2 CYCLES
     Route: 048
     Dates: start: 20200710, end: 20201112

REACTIONS (1)
  - Skin hyperpigmentation [Unknown]

NARRATIVE: CASE EVENT DATE: 20201203
